FAERS Safety Report 6539840-1 (Version None)
Quarter: 2010Q1

REPORT INFORMATION
  Report Type: 
  Country: None (occurrence: None)
  Receive Date: 20100111
  Receipt Date: 20091230
  Transmission Date: 20100710
  Serious: Yes (Hospitalization)
  Sender: FDA-Public Use
  Company Number: 2009AP005208

PATIENT
  Age: 85 Year
  Sex: Male

DRUGS (4)
  1. FLUOXETINE HYDROCHLORIDE [Suspect]
     Indication: SUICIDAL IDEATION
     Dosage: 30 MG; QD;
  2. DULOXETINE HYDROCHLORIDE [Suspect]
     Dosage: 20 MG; QD;
  3. PAROXETINE HYDROCHLORIDE [Concomitant]
  4. ESCITALOPRAM [Concomitant]

REACTIONS (9)
  - ABDOMINAL TENDERNESS [None]
  - DEPRESSION [None]
  - MUSCLE CONTRACTIONS INVOLUNTARY [None]
  - MUSCLE RIGIDITY [None]
  - MUSCULAR WEAKNESS [None]
  - MUSCULOSKELETAL STIFFNESS [None]
  - MYOCLONUS [None]
  - NAUSEA [None]
  - SEROTONIN SYNDROME [None]
